FAERS Safety Report 9192356 (Version 1)
Quarter: 2013Q1

REPORT INFORMATION
  Report Type: Spontaneous
  Country: DE (occurrence: None)
  Receive Date: 20130312
  Receipt Date: 20130312
  Transmission Date: 20140127
  Serious: No
  Sender: FDA-Public Use
  Company Number: AEDU201300078

PATIENT
  Age: 49 Year
  Sex: Male
  Weight: 105 kg

DRUGS (5)
  1. PROLASTIN [Suspect]
     Indication: ALPHA-1 ANTI-TRYPSIN DEFICIENCY
     Dosage: 1000MG;1X;IV
     Route: 042
     Dates: start: 20130227, end: 20130227
  2. BEROTEC N [Concomitant]
  3. RAMIPRIL [Concomitant]
  4. VIANI [Concomitant]
  5. PAROXAT [Concomitant]

REACTIONS (1)
  - Anaphylactic shock [None]
